FAERS Safety Report 5164881-9 (Version None)
Quarter: 2006Q4

REPORT INFORMATION
  Report Type: 
  Country: None (occurrence: None)
  Receive Date: 20061124
  Receipt Date: 20061107
  Transmission Date: 20070319
  Serious: Yes (Other)
  Sender: FDA-Public Use
  Company Number: 230882

PATIENT
  Age: 77 Year
  Sex: Female
  Weight: 53 kg

DRUGS (10)
  1. HERCEPTIN [Suspect]
     Indication: BREAST CANCER METASTATIC
     Dosage: 120 MG, 1/WEEK, INTRAVENOUS
     Route: 042
     Dates: start: 20060816, end: 20060830
  2. TAXOL [Concomitant]
  3. DECADRON [Concomitant]
  4. ALDACTONE [Concomitant]
  5. LASIX [Concomitant]
  6. AMLODIPINE BESYLATE [Concomitant]
  7. ZESTRIL [Concomitant]
  8. TENORMIN [Concomitant]
  9. ACTONEL [Concomitant]
  10. FAMOTIDINE [Concomitant]

REACTIONS (10)
  - BLOOD ALBUMIN DECREASED [None]
  - BLOOD FIBRINOGEN INCREASED [None]
  - BLOOD IMMUNOGLOBULIN G INCREASED [None]
  - BLOOD LACTATE DEHYDROGENASE INCREASED [None]
  - ECHOGRAPHY ABNORMAL [None]
  - ILL-DEFINED DISORDER [None]
  - LABORATORY TEST ABNORMAL [None]
  - NEPHRITIS INTERSTITIAL [None]
  - RENAL DISORDER [None]
  - WHITE BLOOD CELL COUNT INCREASED [None]
